FAERS Safety Report 20407329 (Version 1)
Quarter: 2022Q1

REPORT INFORMATION
  Report Type: Spontaneous
  Country: US (occurrence: None)
  Receive Date: 20220131
  Receipt Date: 20220131
  Transmission Date: 20220423
  Serious: No
  Sender: FDA-Public Use
  Company Number: None

PATIENT
  Age: 68 Year
  Sex: Female

DRUGS (8)
  1. ALENDRONATE [Suspect]
     Active Substance: ALENDRONATE SODIUM
     Indication: Osteoporosis
     Dosage: FREQUENCY : WEEKLY;?
     Route: 048
     Dates: start: 20211106, end: 20211225
  2. NP THYROID [Concomitant]
  3. SPIRONOLACTONE [Concomitant]
     Active Substance: SPIRONOLACTONE
  4. NIACINAMIDE B6 [Concomitant]
  5. POSTURE D [Concomitant]
  6. VITAMIN D3 [Concomitant]
     Active Substance: CHOLECALCIFEROL
  7. ADVIL PM [Concomitant]
  8. TRIPHALA PLUS [Concomitant]

REACTIONS (8)
  - Back pain [None]
  - Mobility decreased [None]
  - Arthralgia [None]
  - Walking aid user [None]
  - Therapy cessation [None]
  - Pain in extremity [None]
  - Pain in extremity [None]
  - Myalgia [None]

NARRATIVE: CASE EVENT DATE: 20211214
